FAERS Safety Report 7912965-1 (Version None)
Quarter: 2011Q4

REPORT INFORMATION
  Report Type: 
  Country: None (occurrence: None)
  Receive Date: 20111114
  Receipt Date: 20111104
  Transmission Date: 20120403
  Serious: Yes (Death, Other)
  Sender: FDA-Public Use
  Company Number: DE-GENZYME-POMP-1001858

PATIENT
  Sex: Female
  Weight: 14.1 kg

DRUGS (1)
  1. MYOZYME [Suspect]
     Indication: GLYCOGEN STORAGE DISEASE TYPE II
     Dosage: 35 MG/KG, Q2W
     Route: 042
     Dates: start: 20110401, end: 20111027

REACTIONS (2)
  - UPPER RESPIRATORY TRACT INFECTION [None]
  - RESPIRATORY FAILURE [None]
